FAERS Safety Report 20506991 (Version 1)
Quarter: 2022Q1

REPORT INFORMATION
  Report Type: Spontaneous
  Country: GB (occurrence: GB)
  Receive Date: 20220223
  Receipt Date: 20220223
  Transmission Date: 20220423
  Serious: Yes (Life-Threatening, Hospitalization, Other)
  Sender: FDA-Public Use
  Company Number: GB-MHRA-MED-202202130001020660-XNZTV

PATIENT
  Age: 42 Year
  Sex: Male

DRUGS (4)
  1. IOPAMIDOL [Suspect]
     Active Substance: IOPAMIDOL
     Indication: Angiocardiogram
     Dosage: 70 ML, SINGLE
     Dates: start: 20220120, end: 20220120
  2. INDAPAMIDE [Concomitant]
     Active Substance: INDAPAMIDE
     Indication: Hypertension
  3. IVABRADINE [Concomitant]
     Active Substance: IVABRADINE
     Indication: Tachycardia
  4. PERINDOPRIL [Concomitant]
     Active Substance: PERINDOPRIL
     Indication: Hypertension

REACTIONS (10)
  - Medication error [Unknown]
  - Epilepsy [Unknown]
  - Muscular weakness [Unknown]
  - Bradycardia [Unknown]
  - Seizure [Unknown]
  - Diarrhoea [Unknown]
  - Angioedema [Unknown]
  - Hypertension [Unknown]
  - Photophobia [Unknown]
  - Nausea [Unknown]

NARRATIVE: CASE EVENT DATE: 20220202
